FAERS Safety Report 5333158-0 (Version None)
Quarter: 2007Q2

REPORT INFORMATION
  Report Type: 
  Country: None (occurrence: None)
  Receive Date: 20070524
  Receipt Date: 20070516
  Transmission Date: 20071010
  Serious: Yes (Other)
  Sender: FDA-Public Use
  Company Number: PHNR2007AU01127

PATIENT
  Sex: Male

DRUGS (1)
  1. ZOMETA [Suspect]
     Dates: end: 20050201

REACTIONS (3)
  - BONE DISORDER [None]
  - ELECTROLYTE IMBALANCE [None]
  - OSTEONECROSIS [None]
